FAERS Safety Report 9362897 (Version 2)
Quarter: 2013Q3

REPORT INFORMATION
  Report Type: Spontaneous
  Country: JP (occurrence: JP)
  Receive Date: 20130624
  Receipt Date: 20130719
  Transmission Date: 20140515
  Serious: Yes (Other)
  Sender: FDA-Public Use
  Company Number: JP-ROCHE-1225736

PATIENT
  Age: 57 Year
  Sex: Male
  Weight: 65 kg

DRUGS (7)
  1. MIRCERA [Suspect]
     Indication: NEPHROGENIC ANAEMIA
     Route: 042
     Dates: start: 20120202, end: 20120605
  2. MIRCERA [Suspect]
     Indication: NEPHROGENIC ANAEMIA
     Route: 042
     Dates: start: 20121030, end: 20121030
  3. FESIN [Concomitant]
     Indication: GLOMERULONEPHRITIS CHRONIC
     Route: 042
     Dates: start: 201111, end: 201205
  4. MICARDIS [Concomitant]
     Route: 048
     Dates: end: 20120313
  5. CALBLOCK [Concomitant]
     Route: 048
     Dates: end: 20120313
  6. NIFEDIPINE [Concomitant]
     Dosage: DRUG REPORTED AS NIFELANTERN CR
     Route: 048
     Dates: end: 201202
  7. ARTIST [Concomitant]
     Route: 048
     Dates: end: 201202

REACTIONS (1)
  - Haemoglobin increased [Not Recovered/Not Resolved]
